FAERS Safety Report 11447872 (Version 1)
Quarter: 2015Q3

REPORT INFORMATION
  Report Type: Spontaneous
  Country: US (occurrence: US)
  Receive Date: 20150831
  Receipt Date: 20150831
  Transmission Date: 20151125
  Serious: Yes (Hospitalization)
  Sender: FDA-Public Use
  Company Number: US-ELI_LILLY_AND_COMPANY-US200904005807

PATIENT
  Age: 79 Year
  Sex: Male

DRUGS (9)
  1. PROVIGIL [Concomitant]
     Active Substance: MODAFINIL
     Dates: start: 200808, end: 200808
  2. SEROQUEL [Concomitant]
     Active Substance: QUETIAPINE FUMARATE
     Dates: start: 200808, end: 200808
  3. DEPAKOTE [Concomitant]
     Active Substance: DIVALPROEX SODIUM
     Dates: start: 200808, end: 200808
  4. LEXAPRO [Concomitant]
     Active Substance: ESCITALOPRAM OXALATE
     Dates: start: 200808, end: 200808
  5. THORAZINE [Concomitant]
     Active Substance: CHLORPROMAZINE
     Dates: start: 200808, end: 200808
  6. HALDOL [Concomitant]
     Active Substance: HALOPERIDOL
     Dates: start: 200808, end: 200808
  7. LUNESTA [Concomitant]
     Active Substance: ESZOPICLONE
     Dates: start: 200808, end: 200808
  8. FAZACLO [Concomitant]
     Active Substance: CLOZAPINE
     Dates: start: 200808, end: 200808
  9. CYMBALTA [Suspect]
     Active Substance: DULOXETINE HYDROCHLORIDE
     Dosage: 1 D/F, UNK
     Route: 048
     Dates: start: 2008

REACTIONS (5)
  - Asthenia [Recovered/Resolved]
  - Incontinence [Unknown]
  - Urinary tract infection [Recovered/Resolved]
  - Weight decreased [Recovering/Resolving]
  - Communication disorder [Recovered/Resolved]

NARRATIVE: CASE EVENT DATE: 200809
